FAERS Safety Report 5399201-8 (Version None)
Quarter: 2007Q3

REPORT INFORMATION
  Report Type: 
  Country: None (occurrence: None)
  Receive Date: 20070727
  Receipt Date: 20070726
  Transmission Date: 20080115
  Serious: Yes (Other)
  Sender: FDA-Public Use
  Company Number: ATWYE476516APR07

PATIENT
  Sex: Male
  Weight: 180 kg

DRUGS (6)
  1. TYGACIL [Suspect]
     Indication: PANCREATITIS
     Route: 042
     Dates: start: 20070406, end: 20070421
  2. TYGACIL [Suspect]
     Indication: PERITONITIS
  3. SOMATOSTATIN [Concomitant]
     Dosage: 6 MG
  4. NEXIUM [Concomitant]
     Indication: PROPHYLAXIS AGAINST GASTROINTESTINAL ULCER
     Dosage: 40 MG
  5. DIPIDOLOR [Concomitant]
     Dosage: 10 MG
  6. ALDACTONE [Concomitant]
     Indication: POLYURIA
     Dosage: 400 MG

REACTIONS (1)
  - PERITONEAL EFFUSION [None]
